FAERS Safety Report 9331838 (Version 1)
Quarter: 2013Q2

REPORT INFORMATION
  Report Type: Spontaneous
  Country: ES (occurrence: None)
  Receive Date: 20130603
  Receipt Date: 20130603
  Transmission Date: 20140414
  Serious: Yes (Death)
  Sender: FDA-Public Use
  Company Number: B0895754A

PATIENT
  Sex: 0

DRUGS (6)
  1. FLOLAN [Suspect]
     Indication: PULMONARY VASCULAR DISORDER
  2. NITRIC OXIDE [Suspect]
     Indication: RESPIRATORY DISORDER
     Route: 055
  3. SILDENAFIL CITRATE [Suspect]
     Route: 048
  4. FLOLAN [Suspect]
     Route: 055
  5. ANTIDEPRESSANT [Concomitant]
  6. DIURETIC [Concomitant]

REACTIONS (4)
  - Pulmonary oedema [None]
  - Leukoencephalopathy [None]
  - Haemorrhage [None]
  - Pulmonary fibrosis [None]
